FAERS Safety Report 6211225-7 (Version None)
Quarter: 2009Q2

REPORT INFORMATION
  Report Type: 
  Country: None (occurrence: None)
  Receive Date: 20090602
  Receipt Date: 20090527
  Transmission Date: 20091009
  Serious: Yes (Other)
  Sender: FDA-Public Use
  Company Number: JP-BAYER-200911741BYL

PATIENT
  Age: 75 Year
  Sex: Female
  Weight: 43 kg

DRUGS (6)
  1. NEXAVAR [Suspect]
     Indication: RENAL CELL CARCINOMA STAGE IV
     Dosage: TOTAL DAILY DOSE: 800 MG  UNIT DOSE: 200 MG
     Route: 048
     Dates: start: 20080829, end: 20080909
  2. NEXAVAR [Suspect]
     Dosage: UNIT DOSE: 200 MG
     Route: 048
     Dates: start: 20080922, end: 20090501
  3. GEMZAR [Concomitant]
     Route: 065
  4. CAPECITABINE [Concomitant]
     Route: 065
  5. TAGAMET [Concomitant]
     Route: 048
     Dates: start: 20060830
  6. PROMAC [Concomitant]
     Route: 048
     Dates: start: 20070119

REACTIONS (9)
  - ALOPECIA [None]
  - BLOOD AMYLASE INCREASED [None]
  - CEREBRAL INFARCTION [None]
  - DYSPHONIA [None]
  - HYPERTENSION [None]
  - LIPASE INCREASED [None]
  - PROTEIN URINE [None]
  - PRURITUS [None]
  - RASH [None]
